FAERS Safety Report 10385006 (Version 2)
Quarter: 2014Q4

REPORT INFORMATION
  Report Type: Spontaneous
  Country: JP (occurrence: JP)
  Receive Date: 20140814
  Receipt Date: 20141016
  Transmission Date: 20150528
  Serious: Yes (Death)
  Sender: FDA-Public Use
  Company Number: PHHY2010JP096313

PATIENT

DRUGS (1)
  1. AFINITOR [Suspect]
     Active Substance: EVEROLIMUS
     Dosage: 5 MG, DAILY
     Dates: start: 201007

REACTIONS (7)
  - Blood alkaline phosphatase increased [Fatal]
  - C-reactive protein increased [Fatal]
  - Platelet count decreased [Fatal]
  - Erythropenia [Fatal]
  - Renal failure [Fatal]
  - Hyperuricaemia [Fatal]
  - Malignant neoplasm progression [Fatal]
